FAERS Safety Report 19708751 (Version 1)
Quarter: 2021Q3

REPORT INFORMATION
  Report Type: Spontaneous
  Country: US (occurrence: US)
  Receive Date: 20210816
  Receipt Date: 20210816
  Transmission Date: 20211014
  Serious: No
  Sender: FDA-Public Use
  Company Number: None

PATIENT
  Age: 63 Year
  Sex: Male
  Weight: 48 kg

DRUGS (1)
  1. AMITRIPTYLINE (AMITRIPTYLINE HCL 10MG TAB) [Suspect]
     Active Substance: AMITRIPTYLINE HYDROCHLORIDE
     Indication: PAIN
     Route: 048
     Dates: start: 20210629, end: 20210727

REACTIONS (1)
  - Sedation [None]

NARRATIVE: CASE EVENT DATE: 20210727
